FAERS Safety Report 9405389 (Version 1)
Quarter: 2013Q3

REPORT INFORMATION
  Report Type: Spontaneous
  Country: US (occurrence: US)
  Receive Date: 20130717
  Receipt Date: 20130717
  Transmission Date: 20140515
  Serious: No
  Sender: FDA-Public Use
  Company Number: US-009507513-2011SP038971

PATIENT
  Age: 22 Year
  Sex: Female
  Weight: 97.7 kg

DRUGS (2)
  1. NUVARING [Suspect]
     Indication: CONTRACEPTION
     Dosage: UNK
     Route: 067
     Dates: start: 20110722, end: 20110812
  2. NUVARING [Suspect]
     Dosage: UNK
     Route: 067
     Dates: start: 201108

REACTIONS (3)
  - Menstruation delayed [Not Recovered/Not Resolved]
  - Device expulsion [Unknown]
  - Incorrect drug administration duration [Unknown]
